FAERS Safety Report 25863624 (Version 3)
Quarter: 2025Q4

REPORT INFORMATION
  Report Type: Spontaneous
  Country: US (occurrence: US)
  Receive Date: 20250930
  Receipt Date: 20251128
  Transmission Date: 20260117
  Serious: Yes (Hospitalization, Other)
  Sender: VERASTEM
  Company Number: US-VERASTEM-250917US-AFCPK-00581

PATIENT

DRUGS (1)
  1. AVMAPKI FAKZYNJA CO-PACK [Suspect]
     Active Substance: AVUTOMETINIB POTASSIUM\DEFACTINIB HYDROCHLORIDE
     Indication: Ovarian cancer
     Dosage: 3.2 MG AVMAKI 2 TIMES A WEEK AND 200 MG FAKYNZA TWICE A DAY, BOTH FOR THE FIRST 3 WEEKS OF EACH 4-WE
     Route: 048
     Dates: start: 20250903, end: 20250914

REACTIONS (2)
  - Pancreatitis necrotising [Unknown]
  - Abdominal pain [Unknown]

NARRATIVE: CASE EVENT DATE: 20250908
